FAERS Safety Report 4595016-9 (Version None)
Quarter: 2005Q1

REPORT INFORMATION
  Report Type: 
  Country: None (occurrence: None)
  Receive Date: 20050224
  Receipt Date: 20030909
  Transmission Date: 20050727
  Serious: Yes (Life-Threatening)
  Sender: FDA-Public Use
  Company Number: GXKR2003GB00628

PATIENT
  Age: 66 Year
  Sex: Female

DRUGS (1)
  1. TRIMETHOPRIM [Suspect]
     Indication: URINARY TRACT INFECTION
     Dosage: 200 MG, ORAL
     Route: 048
     Dates: start: 20030822, end: 20030822

REACTIONS (4)
  - ANAPHYLACTIC SHOCK [None]
  - CHEST DISCOMFORT [None]
  - CHEST PAIN [None]
  - RASH PRURITIC [None]
